FAERS Safety Report 23769457 (Version 1)
Quarter: 2024Q2

REPORT INFORMATION
  Report Type: Spontaneous
  Country: CA (occurrence: CA)
  Receive Date: 20240422
  Receipt Date: 20240422
  Transmission Date: 20240716
  Serious: Yes (Other)
  Sender: FDA-Public Use
  Company Number: CA-SANDOZ-SDZ2024CA041232

PATIENT
  Age: 76 Year
  Sex: Female

DRUGS (2)
  1. ADALIMUMAB [Suspect]
     Active Substance: ADALIMUMAB\ISOPROPYL ALCOHOL
     Indication: Crohn^s disease
     Dosage: 40 MG (1 EVERY 2 WEEKS)
     Route: 065
  2. RABEPRAZOLE [Concomitant]
     Active Substance: RABEPRAZOLE
     Indication: Product used for unknown indication
     Dosage: 20 MG, Q12H
     Route: 065

REACTIONS (3)
  - Melanocytic naevus [Not Recovered/Not Resolved]
  - Contusion [Not Recovered/Not Resolved]
  - Chest discomfort [Not Recovered/Not Resolved]
